FAERS Safety Report 5737769-X (Version None)
Quarter: 2008Q2

REPORT INFORMATION
  Report Type: 
  Country: None (occurrence: None)
  Receive Date: 20080514
  Receipt Date: 20080508
  Transmission Date: 20081010
  Serious: Yes (Death)
  Sender: FDA-Public Use
  Company Number: JP-AVENTIS-200613845JP

PATIENT
  Age: 79 Year
  Sex: Male
  Weight: 50.2 kg

DRUGS (54)
  1. TAXOTERE [Suspect]
     Indication: NON-SMALL CELL LUNG CANCER RECURRENT
     Dosage: DOSE: 52 MG TWICE/3 WEEKS
     Route: 041
     Dates: start: 20060822, end: 20061031
  2. TERSIGAN [Suspect]
     Indication: CHRONIC OBSTRUCTIVE PULMONARY DISEASE
     Route: 055
     Dates: start: 20061031, end: 20061109
  3. TS-1 [Concomitant]
     Indication: NON-SMALL CELL LUNG CANCER RECURRENT
     Route: 048
     Dates: start: 20051010, end: 20060727
  4. UFT [Concomitant]
     Route: 048
     Dates: start: 20030711, end: 20050623
  5. DECADRON [Concomitant]
     Route: 041
     Dates: start: 20060822, end: 20060822
  6. DECADRON [Concomitant]
     Route: 041
     Dates: start: 20060829, end: 20060829
  7. DECADRON [Concomitant]
     Route: 041
     Dates: start: 20060912, end: 20060912
  8. DECADRON [Concomitant]
     Route: 041
     Dates: start: 20060919, end: 20060919
  9. DECADRON [Concomitant]
     Route: 041
     Dates: start: 20061003, end: 20061003
  10. DECADRON [Concomitant]
     Route: 041
     Dates: start: 20061010, end: 20061010
  11. DECADRON [Concomitant]
     Route: 041
     Dates: start: 20061024, end: 20061024
  12. DECADRON [Concomitant]
     Route: 041
     Dates: start: 20061031, end: 20061031
  13. DECADRON [Concomitant]
     Route: 041
     Dates: start: 20061109, end: 20061109
  14. ISOTONIC SODIUM CHLORIDE SOLUTION [Concomitant]
     Route: 041
     Dates: start: 20060822, end: 20060822
  15. ISOTONIC SODIUM CHLORIDE SOLUTION [Concomitant]
     Route: 041
     Dates: start: 20060829, end: 20060829
  16. ISOTONIC SODIUM CHLORIDE SOLUTION [Concomitant]
     Route: 041
     Dates: start: 20060912, end: 20060912
  17. ISOTONIC SODIUM CHLORIDE SOLUTION [Concomitant]
     Route: 041
     Dates: start: 20060919, end: 20060919
  18. ISOTONIC SODIUM CHLORIDE SOLUTION [Concomitant]
     Route: 041
     Dates: start: 20061003, end: 20061003
  19. ISOTONIC SODIUM CHLORIDE SOLUTION [Concomitant]
     Route: 041
     Dates: start: 20061010, end: 20061010
  20. ISOTONIC SODIUM CHLORIDE SOLUTION [Concomitant]
     Route: 041
     Dates: start: 20061024, end: 20061024
  21. ISOTONIC SODIUM CHLORIDE SOLUTION [Concomitant]
     Route: 041
     Dates: start: 20061031, end: 20061031
  22. ISOTONIC SODIUM CHLORIDE SOLUTION [Concomitant]
     Route: 051
     Dates: start: 20061109, end: 20061111
  23. ISOTONIC SODIUM CHLORIDE SOLUTION [Concomitant]
     Route: 051
     Dates: start: 20061118, end: 20061205
  24. ISOTONIC SODIUM CHLORIDE SOLUTION [Concomitant]
     Route: 051
     Dates: start: 20061201, end: 20061203
  25. ISOTONIC SODIUM CHLORIDE SOLUTION [Concomitant]
     Route: 051
     Dates: start: 20061201, end: 20061201
  26. ISOTONIC SODIUM CHLORIDE SOLUTION [Concomitant]
     Route: 051
     Dates: start: 20061205, end: 20061205
  27. 5 % GLUCOSE [Concomitant]
     Route: 041
     Dates: start: 20060822, end: 20060822
  28. 5 % GLUCOSE [Concomitant]
     Route: 041
     Dates: start: 20060829, end: 20060829
  29. 5 % GLUCOSE [Concomitant]
     Route: 041
     Dates: start: 20060912, end: 20060912
  30. 5 % GLUCOSE [Concomitant]
     Route: 041
     Dates: start: 20060919, end: 20060919
  31. 5 % GLUCOSE [Concomitant]
     Route: 041
     Dates: start: 20061003, end: 20061003
  32. 5 % GLUCOSE [Concomitant]
     Route: 041
     Dates: start: 20061010, end: 20061010
  33. 5 % GLUCOSE [Concomitant]
     Route: 041
     Dates: start: 20061024, end: 20061024
  34. 5 % GLUCOSE [Concomitant]
     Route: 041
     Dates: start: 20061031, end: 20061031
  35. 5 % GLUCOSE [Concomitant]
     Route: 051
     Dates: start: 20061130, end: 20061205
  36. BIOFERMIN [Concomitant]
     Indication: DIARRHOEA
     Route: 048
     Dates: start: 20060905, end: 20060911
  37. BIOFERMIN [Concomitant]
     Route: 048
     Dates: start: 20061010, end: 20061120
  38. HERBESSER [Concomitant]
     Indication: HYPERTENSION
     Route: 048
     Dates: start: 20030501, end: 20061117
  39. HARNAL [Concomitant]
     Route: 048
     Dates: start: 20030628
  40. ALDACTONE [Concomitant]
     Indication: HYPERTENSION
     Route: 048
     Dates: start: 20030501, end: 20061117
  41. SIGMART [Concomitant]
     Indication: HYPERTENSION
     Route: 048
     Dates: start: 20030501, end: 20061117
  42. MAGNESIUM OXIDE [Concomitant]
     Dates: start: 20060825
  43. LOPEMIN [Concomitant]
     Dates: start: 20060905
  44. LEVOFLOXACIN [Concomitant]
     Dates: start: 20060822
  45. DICHLOD [Concomitant]
     Dates: start: 20060822
  46. FLUMETHOLON [Concomitant]
     Dates: start: 20060822
  47. HERBAL PREPARATION [Concomitant]
     Route: 048
     Dates: start: 20060919, end: 20061002
  48. HERBAL PREPARATION [Concomitant]
     Route: 048
     Dates: start: 20061024, end: 20061113
  49. DECADRON [Concomitant]
     Route: 048
     Dates: start: 20061001, end: 20061005
  50. DECADRON [Concomitant]
     Route: 048
     Dates: start: 20061006, end: 20061014
  51. DECADRON [Concomitant]
     Route: 048
     Dates: start: 20061024, end: 20061028
  52. FERROMIA                           /00023516/ [Concomitant]
     Route: 048
     Dates: start: 20061010, end: 20061113
  53. COMBINATIONS OF VITAMINS [Concomitant]
     Dosage: DOSE: 2 TABLETS
     Route: 048
     Dates: start: 20061010, end: 20061204
  54. LENDORMIN [Concomitant]
     Dates: start: 20061010

REACTIONS (1)
  - INTERSTITIAL LUNG DISEASE [None]
